FAERS Safety Report 15021330 (Version 1)
Quarter: 2018Q2

REPORT INFORMATION
  Report Type: Spontaneous
  Country: GB (occurrence: GB)
  Receive Date: 20180618
  Receipt Date: 20180618
  Transmission Date: 20180711
  Serious: Yes (Other)
  Sender: FDA-Public Use
  Company Number: GB-TEVA-2018-GB-907890

PATIENT
  Age: 67 Year
  Sex: Female
  Weight: 60.32 kg

DRUGS (2)
  1. LOPERAMIDE HYDROCHLORIDE. [Suspect]
     Active Substance: LOPERAMIDE HYDROCHLORIDE
     Indication: DIARRHOEA
     Dosage: 2 PILLS THEN 1 MORE
     Route: 048
     Dates: start: 20180420, end: 20180420
  2. COCODAMOL [Concomitant]
     Active Substance: ACETAMINOPHEN\CODEINE PHOSPHATE
     Route: 065

REACTIONS (8)
  - Rash [Unknown]
  - Wound secretion [Unknown]
  - Swelling face [Unknown]
  - Erythema [Unknown]
  - Paraesthesia [Unknown]
  - Blister [Unknown]
  - Salivary gland enlargement [Unknown]
  - Pruritus [Unknown]

NARRATIVE: CASE EVENT DATE: 20180420
